FAERS Safety Report 7218693-2 (Version None)
Quarter: 2011Q1

REPORT INFORMATION
  Report Type: 
  Country: None (occurrence: None)
  Receive Date: 20110110
  Receipt Date: 20101005
  Transmission Date: 20110831
  Serious: No
  Sender: FDA-Public Use
  Company Number: US-ABBOTT-10P-163-0676685-00

PATIENT
  Age: 3 Month

DRUGS (1)
  1. VICODIN [Suspect]
     Indication: DRUG EXPOSURE DURING PREGNANCY
     Route: 064

REACTIONS (7)
  - CONSTIPATION [None]
  - DRUG EXPOSURE DURING PREGNANCY [None]
  - DRUG SCREEN POSITIVE [None]
  - DISCOMFORT [None]
  - GASTROINTESTINAL DISORDER [None]
  - FLATULENCE [None]
  - HAEMATOCHEZIA [None]
